FAERS Safety Report 5428054-4 (Version None)
Quarter: 2007Q3

REPORT INFORMATION
  Report Type: 
  Country: None (occurrence: None)
  Receive Date: 20070828
  Receipt Date: 20070823
  Transmission Date: 20080115
  Serious: Yes (Other)
  Sender: FDA-Public Use
  Company Number: US-ROXANE LABORATORIES, INC-2007-DE-04976GD

PATIENT
  Age: 55 Year
  Sex: Male

DRUGS (4)
  1. RT-PA [Suspect]
     Indication: ARTERIAL THROMBOSIS LIMB
     Route: 013
  2. MORPHINE [Suspect]
     Indication: ISCHAEMIC LIMB PAIN
  3. HEPARIN [Suspect]
     Indication: ARTERIAL THROMBOSIS LIMB
     Dosage: INFUSION TITRATED TO A PTT OF APPROX. 70 S
  4. NARCOTICS [Suspect]
     Indication: ISCHAEMIC LIMB PAIN
     Route: 051

REACTIONS (8)
  - AGITATION [None]
  - DISORIENTATION [None]
  - DRUG INEFFECTIVE [None]
  - ISCHAEMIC STROKE [None]
  - PAIN [None]
  - PUNCTURE SITE HAEMORRHAGE [None]
  - UNRESPONSIVE TO STIMULI [None]
  - VERTEBRAL ARTERY THROMBOSIS [None]
